FAERS Safety Report 6035189-4 (Version None)
Quarter: 2009Q1

REPORT INFORMATION
  Report Type: 
  Country: None (occurrence: None)
  Receive Date: 20090109
  Receipt Date: 20081226
  Transmission Date: 20090719
  Serious: Yes (Hospitalization, Other)
  Sender: FDA-Public Use
  Company Number: 107#08#2009-00016

PATIENT
  Age: 35 Year
  Sex: Female

DRUGS (5)
  1. VERAPAMIL [Suspect]
     Indication: ARRHYTHMIA SUPRAVENTRICULAR
     Dosage: SEE IMAGE
  2. SOTALOL HCL [Suspect]
     Indication: ARRHYTHMIA SUPRAVENTRICULAR
     Dosage: 80 MG TWICE DAILY ORAL
     Route: 048
  3. ADENOSINE [Concomitant]
  4. PROPOFOL [Concomitant]
  5. RED BLOOD CELLS [Concomitant]

REACTIONS (17)
  - ANAEMIA [None]
  - ATRIAL FIBRILLATION [None]
  - BLOOD PRESSURE DECREASED [None]
  - CAESAREAN SECTION [None]
  - CONDITION AGGRAVATED [None]
  - DILATATION ATRIAL [None]
  - DRUG EXPOSURE DURING PREGNANCY [None]
  - ELECTROLYTE IMBALANCE [None]
  - HAEMODYNAMIC INSTABILITY [None]
  - HYPOALBUMINAEMIA [None]
  - MITRAL VALVE INCOMPETENCE [None]
  - MYOCARDIAL ISCHAEMIA [None]
  - NO THERAPEUTIC RESPONSE [None]
  - PALPITATIONS [None]
  - SUPRAVENTRICULAR TACHYCARDIA [None]
  - TRICUSPID VALVE INCOMPETENCE [None]
  - VENTRICULAR TACHYCARDIA [None]
